FAERS Safety Report 4768421-5 (Version None)
Quarter: 2005Q3

REPORT INFORMATION
  Report Type: 
  Country: None (occurrence: None)
  Receive Date: 20050908
  Receipt Date: 20050630
  Transmission Date: 20060218
  Serious: Yes (Other)
  Sender: FDA-Public Use
  Company Number: 2005-0007962

PATIENT
  Age: 40 Year
  Sex: Male
  Weight: 76.6579 kg

DRUGS (13)
  1. TRUVADA [Suspect]
     Indication: HIV INFECTION
     Dosage: 200 MG, 1 IN 1 D, ORAL
     Route: 048
     Dates: start: 20040901, end: 20050112
  2. VIREAD [Suspect]
     Indication: HIV INFECTION
     Dosage: 300 MG, ORAL
     Route: 048
     Dates: start: 20020219, end: 20040901
  3. REYATAZ [Concomitant]
  4. NORVIR [Concomitant]
  5. VIDEX EC [Concomitant]
  6. DIFLUCAN [Concomitant]
  7. BACTRIM DS [Concomitant]
  8. XANAX [Concomitant]
  9. AMBIEN [Concomitant]
  10. LEXAPRO [Concomitant]
  11. NEURONTIN [Concomitant]
  12. TRICOR [Concomitant]
  13. ZOLOFT [Concomitant]

REACTIONS (1)
  - RENAL FAILURE ACUTE [None]
